FAERS Safety Report 5789000-7 (Version None)
Quarter: 2008Q2

REPORT INFORMATION
  Report Type: 
  Country: None (occurrence: None)
  Receive Date: 20080626
  Receipt Date: 20080619
  Transmission Date: 20081010
  Serious: Yes (Hospitalization)
  Sender: FDA-Public Use
  Company Number: FR-ABBOTT-08P-056-0458670-00

PATIENT
  Sex: Male
  Weight: 2.11 kg

DRUGS (9)
  1. SEVORANE [Suspect]
     Indication: ANAESTHESIA
     Route: 055
     Dates: start: 20080328, end: 20080328
  2. PROPOFOL [Suspect]
     Indication: ANAESTHESIA
     Route: 042
     Dates: start: 20080328, end: 20080328
  3. BUPIVACAINE [Suspect]
     Indication: ANAESTHESIA
     Route: 055
     Dates: start: 20080328, end: 20080328
  4. CLONIDINE [Suspect]
     Indication: HYPERTENSION
     Dates: start: 20080328, end: 20080328
  5. RETINOL [Concomitant]
     Indication: VITAMIN SUPPLEMENTATION
     Route: 048
     Dates: start: 20080115
  6. FUMARATE FERROUS [Concomitant]
     Indication: MINERAL SUPPLEMENTATION
     Route: 048
     Dates: start: 20080122
  7. ERGOCALCIFEROL [Concomitant]
     Indication: VITAMIN SUPPLEMENTATION
     Route: 048
     Dates: start: 20080115
  8. TOCOPHERYL ACETATE [Concomitant]
     Indication: VITAMIN SUPPLEMENTATION
     Route: 048
     Dates: start: 20080115
  9. ASCORBIC ACID [Concomitant]
     Indication: VITAMIN SUPPLEMENTATION
     Route: 048
     Dates: start: 20080115

REACTIONS (1)
  - RENAL FAILURE ACUTE [None]
